FAERS Safety Report 6122101-2 (Version None)
Quarter: 2009Q1

REPORT INFORMATION
  Report Type: 
  Country: None (occurrence: None)
  Receive Date: 20090316
  Receipt Date: 20090316
  Transmission Date: 20090719
  Serious: Yes (Other)
  Sender: FDA-Public Use
  Company Number: None

PATIENT
  Age: 56 Year
  Sex: Male
  Weight: 80.7403 kg

DRUGS (6)
  1. GADOLINIUM [Suspect]
     Indication: ENZYME ABNORMALITY
     Dates: start: 20070101, end: 20080101
  2. GADOLINIUM [Suspect]
     Indication: HEPATITIS
     Dates: start: 20070101, end: 20080101
  3. GADOLINIUM [Suspect]
     Indication: NUCLEAR MAGNETIC RESONANCE IMAGING
     Dates: start: 20070101, end: 20080101
  4. GADOLINIUM [Suspect]
     Indication: ENZYME ABNORMALITY
     Dates: start: 20080101, end: 20090101
  5. GADOLINIUM [Suspect]
     Indication: HEPATITIS
     Dates: start: 20080101, end: 20090101
  6. GADOLINIUM [Suspect]
     Indication: NUCLEAR MAGNETIC RESONANCE IMAGING
     Dates: start: 20080101, end: 20090101

REACTIONS (8)
  - ARTHROPATHY [None]
  - HYPOKALAEMIA [None]
  - JOINT LOCK [None]
  - MUSCLE CONTRACTIONS INVOLUNTARY [None]
  - NEPHROGENIC SYSTEMIC FIBROSIS [None]
  - PAIN [None]
  - RASH MACULAR [None]
  - SKIN LESION [None]
